FAERS Safety Report 18298009 (Version 2)
Quarter: 2020Q4

REPORT INFORMATION
  Report Type: Spontaneous
  Country: ES (occurrence: ES)
  Receive Date: 20200922
  Receipt Date: 20201015
  Transmission Date: 20210113
  Serious: Yes (Other)
  Sender: FDA-Public Use
  Company Number: ES-AMGEN-ESPSP2020150452

PATIENT
  Age: 57 Year
  Sex: Female

DRUGS (2)
  1. VITAMIN D [COLECALCIFEROL] [Concomitant]
     Active Substance: CHOLECALCIFEROL
     Dosage: UNK
  2. PROLIA [Suspect]
     Active Substance: DENOSUMAB
     Indication: OSTEOPOROSIS
     Dosage: UNK
     Route: 065
     Dates: end: 201610

REACTIONS (2)
  - Thoracic vertebral fracture [Unknown]
  - Gastrointestinal candidiasis [Unknown]

NARRATIVE: CASE EVENT DATE: 201810
